FAERS Safety Report 22241988 (Version 2)
Quarter: 2023Q2

REPORT INFORMATION
  Report Type: Report from Study
  Country: CO (occurrence: CO)
  Receive Date: 20230421
  Receipt Date: 20230605
  Transmission Date: 20230722
  Serious: Yes (Other)
  Sender: FDA-Public Use
  Company Number: CO-002147023-NVSC2023CO091168

PATIENT

DRUGS (1)
  1. COSENTYX [Suspect]
     Active Substance: SECUKINUMAB
     Indication: Foetal exposure during pregnancy
     Dosage: UNK (PATERNAL EXPOSURE DURING PREGNANCY AT A DOSE OF 150 MG, QMO)
     Route: 050

REACTIONS (2)
  - Meningocele [Unknown]
  - Exposure via father [Unknown]
